FAERS Safety Report 7544333-9 (Version None)
Quarter: 2011Q2

REPORT INFORMATION
  Report Type: 
  Country: None (occurrence: None)
  Receive Date: 20110613
  Receipt Date: 20080218
  Transmission Date: 20111010
  Serious: Yes (Other)
  Sender: FDA-Public Use
  Company Number: PHHY2008US01212

PATIENT
  Sex: Female

DRUGS (2)
  1. DIOVAN [Suspect]
     Indication: HYPERTENSION
     Dosage: 80MG/DAY
     Route: 048
     Dates: start: 20050101
  2. VERAPAMIL [Concomitant]
     Dosage: UNKNOWN

REACTIONS (2)
  - CONDITION AGGRAVATED [None]
  - NEUROPATHY PERIPHERAL [None]
